FAERS Safety Report 12828910 (Version 1)
Quarter: 2016Q4

REPORT INFORMATION
  Report Type: Spontaneous
  Country: US (occurrence: US)
  Receive Date: 20161007
  Receipt Date: 20161007
  Transmission Date: 20170207
  Serious: No
  Sender: FDA-Public Use
  Company Number: US-SA-2016SA028179

PATIENT
  Sex: Female

DRUGS (1)
  1. AUBAGIO [Suspect]
     Active Substance: TERIFLUNOMIDE
     Indication: MULTIPLE SCLEROSIS
     Dosage: STRENGTH : 14;UNITS  :UNSPECIFIED
     Route: 048

REACTIONS (3)
  - Trismus [Unknown]
  - Dyspepsia [Unknown]
  - Abdominal pain upper [Unknown]
